FAERS Safety Report 4865273-X (Version None)
Quarter: 2005Q4

REPORT INFORMATION
  Report Type: 
  Country: None (occurrence: None)
  Receive Date: 20051223
  Receipt Date: 20051209
  Transmission Date: 20060501
  Serious: Yes (Death, Other)
  Sender: FDA-Public Use
  Company Number: JP-SANOFI-SYNTHELABO-F01200502723

PATIENT
  Sex: Male
  Weight: 55 kg

DRUGS (21)
  1. OXALIPLATIN [Suspect]
     Indication: COLON CANCER
     Route: 042
     Dates: start: 20051202, end: 20051202
  2. FLUOROURACIL [Suspect]
     Dosage: 400MG/BODY =261.4MG/M2 IN BOLUS THEN 600MG/BODY=392.2MG/M2 AS CONTINUOUS INFUSION ON DAYS 1 AND 2
     Route: 040
     Dates: start: 20051124, end: 20051124
  3. FLUOROURACIL [Suspect]
     Route: 042
     Dates: start: 20051124, end: 20051124
  4. CALCIUM LEVOFOLINATE [Suspect]
     Route: 042
     Dates: start: 20051124, end: 20051124
  5. MINOCYCLINE HCL [Concomitant]
     Route: 042
     Dates: start: 20051128, end: 20051128
  6. PANSPORIN [Concomitant]
     Route: 042
     Dates: start: 20051128, end: 20051202
  7. MAGNESIUM OXIDE [Concomitant]
     Route: 048
     Dates: start: 20051129, end: 20051204
  8. LACTEC [Concomitant]
     Dosage: 1 DF
     Route: 042
     Dates: start: 20051202, end: 20051203
  9. SOLDEM 3A [Concomitant]
     Dosage: 1 DF
     Route: 042
     Dates: start: 20051202, end: 20051203
  10. BACTRIM [Concomitant]
     Route: 048
     Dates: start: 20051202, end: 20051203
  11. ELEMENMIC [Concomitant]
     Dosage: 1 DF
     Route: 042
     Dates: start: 20051203, end: 20051203
  12. TIENAM [Concomitant]
     Route: 042
     Dates: start: 20051202, end: 20051202
  13. FULCALIQ 1 [Concomitant]
     Dosage: 1 DF
     Route: 042
     Dates: start: 20051203, end: 20051204
  14. KENKETSU GLOVENIN-1NICHIYAKU [Concomitant]
     Dosage: 2 DF
     Route: 042
     Dates: start: 20051203, end: 20051205
  15. VORICONAZOLE [Concomitant]
     Route: 042
     Dates: start: 20051203, end: 20051206
  16. BENAMBAX [Concomitant]
     Route: 042
     Dates: start: 20051203, end: 20051206
  17. DORICUM [Concomitant]
     Route: 042
     Dates: start: 20051204, end: 20051209
  18. LEPETAN [Concomitant]
     Route: 042
     Dates: start: 20051204, end: 20051209
  19. FULCALIQ 2 [Concomitant]
     Dosage: 4 DF
     Route: 042
     Dates: start: 20051205, end: 20051205
  20. INOVAN [Concomitant]
     Dosage: 5 DF
     Route: 042
     Dates: start: 20051205, end: 20051209
  21. INTEBAN [Concomitant]
     Dosage: 25 MG PR
     Dates: start: 20051206, end: 20051206

REACTIONS (11)
  - ASPARTATE AMINOTRANSFERASE INCREASED [None]
  - DIARRHOEA [None]
  - INTERSTITIAL LUNG DISEASE [None]
  - LEUKOPENIA [None]
  - NEUTROPENIA [None]
  - PNEUMOCYSTIS JIROVECI INFECTION [None]
  - RESPIRATORY FAILURE [None]
  - RESPIRATORY TRACT INFECTION FUNGAL [None]
  - RESPIRATORY TRACT INFECTION VIRAL [None]
  - STOMATITIS [None]
  - THROMBOCYTOPENIA [None]
